FAERS Safety Report 9850740 (Version 1)
Quarter: 2014Q1

REPORT INFORMATION
  Report Type: Spontaneous
  Country: US (occurrence: US)
  Receive Date: 20140128
  Receipt Date: 20140128
  Transmission Date: 20141002
  Serious: Yes (Other)
  Sender: FDA-Public Use
  Company Number: US-PFIZER INC-2014023267

PATIENT
  Sex: Female

DRUGS (1)
  1. CHANTIX [Suspect]
     Indication: SMOKING CESSATION THERAPY
     Dosage: UNK

REACTIONS (5)
  - Angiopathy [Unknown]
  - Poor peripheral circulation [Unknown]
  - Renal disorder [Unknown]
  - Limb discomfort [Unknown]
  - Circumstance or information capable of leading to medication error [Unknown]
